FAERS Safety Report 14119922 (Version 1)
Quarter: 2017Q4

REPORT INFORMATION
  Report Type: Spontaneous
  Country: JP (occurrence: JP)
  Receive Date: 20171024
  Receipt Date: 20171024
  Transmission Date: 20180321
  Serious: Yes (Hospitalization)
  Sender: FDA-Public Use
  Company Number: JP-GLAXOSMITHKLINE-JP2017JPN142935

PATIENT
  Age: 32 Year
  Sex: Female

DRUGS (10)
  1. LAMICTAL [Suspect]
     Active Substance: LAMOTRIGINE
     Indication: BIPOLAR DISORDER
     Dosage: 25 MG, 1D
     Route: 048
     Dates: start: 20170710
  2. SEDIEL [Suspect]
     Active Substance: TANDOSPIRONE
     Indication: BIPOLAR DISORDER
     Dosage: 20 MG, 1D
     Route: 048
     Dates: end: 20170811
  3. ABILIFY [Concomitant]
     Active Substance: ARIPIPRAZOLE
     Dosage: 12 MG, 1D
  4. SEROQUEL [Concomitant]
     Active Substance: QUETIAPINE FUMARATE
     Dosage: 200 MG, 1D
  5. LAMICTAL [Suspect]
     Active Substance: LAMOTRIGINE
     Dosage: 50 MG, 1D
     Route: 048
     Dates: start: 20170720
  6. DEPROMEL [Concomitant]
     Active Substance: FLUVOXAMINE
     Dosage: 100 MG, 1D
  7. LAMICTAL [Suspect]
     Active Substance: LAMOTRIGINE
     Dosage: 100 MG, QD
     Route: 048
     Dates: start: 20170803, end: 20170811
  8. CYMBALTA [Suspect]
     Active Substance: DULOXETINE HYDROCHLORIDE
     Dosage: 60 MG, 1D
     Route: 048
     Dates: end: 20170811
  9. CYMBALTA [Suspect]
     Active Substance: DULOXETINE HYDROCHLORIDE
     Indication: BIPOLAR DISORDER
     Dosage: 60 UNK, UNK
     Route: 048
     Dates: start: 201606
  10. ROHYPNOL [Concomitant]
     Active Substance: FLUNITRAZEPAM
     Indication: INSOMNIA
     Dosage: 4 MG, 1D
     Dates: start: 20161011, end: 20170811

REACTIONS (5)
  - Pyrexia [Unknown]
  - Swelling face [Unknown]
  - Drug eruption [Unknown]
  - Rash [Unknown]
  - Generalised erythema [Unknown]

NARRATIVE: CASE EVENT DATE: 201708
